FAERS Safety Report 4303467-2 (Version None)
Quarter: 2004Q1

REPORT INFORMATION
  Report Type: 
  Country: None (occurrence: None)
  Receive Date: 20040223
  Receipt Date: 20040218
  Transmission Date: 20041129
  Serious: Yes (Hospitalization)
  Sender: FDA-Public Use
  Company Number: 200402109

PATIENT
  Age: 76 Year
  Sex: Male

DRUGS (7)
  1. IMODIUM A-D [Suspect]
     Indication: DIARRHOEA
     Dosage: 2 MG QD PRN PO
     Route: 048
     Dates: start: 20040130
  2. ACTOS [Suspect]
     Dosage: PO
     Route: 048
     Dates: start: 20031201
  3. AMARYL [Concomitant]
  4. LISINOPRIL [Concomitant]
  5. METOPROLOL [Concomitant]
  6. LIPITOR [Concomitant]
  7. ASPIRIN [Concomitant]

REACTIONS (5)
  - COLD SWEAT [None]
  - DIARRHOEA [None]
  - FAECES DISCOLOURED [None]
  - GASTRIC ULCER HAEMORRHAGE [None]
  - PALLOR [None]
